FAERS Safety Report 5454999-5 (Version None)
Quarter: 2007Q3

REPORT INFORMATION
  Report Type: 
  Country: None (occurrence: None)
  Receive Date: 20070913
  Receipt Date: 20070903
  Transmission Date: 20080115
  Serious: Yes (Hospitalization)
  Sender: FDA-Public Use
  Company Number: E2020-01588-SPO-FR

PATIENT
  Age: 79 Year
  Sex: Female

DRUGS (5)
  1. ARICEPT (DONEPEZIL HYDROCHLORID) [Suspect]
     Indication: DEMENTIA ALZHEIMER'S TYPE
     Dosage: 10 MG, 1 IN 1 D, ORAL
     Route: 048
     Dates: end: 20070814
  2. COTAREG (CO-DIOVAN) [Suspect]
     Indication: DRUG USE FOR UNKNOWN INDICATION
     Dosage: 80/12.5 MG, ORAL
     Route: 048
     Dates: end: 20070814
  3. EBIXA (MEMANTINE) [Suspect]
     Indication: DRUG USE FOR UNKNOWN INDICATION
     Dosage: 10 MG, ORAL
     Route: 048
     Dates: end: 20070814
  4. DEROXAT (PAROXETINE HYDROCHLORIDE) [Suspect]
     Indication: DRUG USE FOR UNKNOWN INDICATION
     Dosage: 10 MG, ORAL
     Route: 048
     Dates: end: 20070814
  5. RISPERDAL [Concomitant]

REACTIONS (4)
  - DEHYDRATION [None]
  - LUNG INFECTION [None]
  - RENAL FAILURE [None]
  - RENAL FAILURE ACUTE [None]
